FAERS Safety Report 9298318 (Version 2)
Quarter: 2013Q2

REPORT INFORMATION
  Report Type: Report from Study
  Country: US (occurrence: US)
  Receive Date: 20130520
  Receipt Date: 20130607
  Transmission Date: 20140414
  Serious: Yes (Hospitalization)
  Sender: FDA-Public Use
  Company Number: US-ACTELION-A-NJ2013-83308

PATIENT
  Age: 67 Year
  Sex: Female

DRUGS (7)
  1. VELETRI [Suspect]
     Indication: PULMONARY ARTERIAL HYPERTENSION
     Dosage: 80 NG/KG, PER MIN
     Route: 041
     Dates: start: 201009
  2. TRACLEER [Suspect]
     Indication: PULMONARY ARTERIAL HYPERTENSION
     Dosage: UNK
     Route: 048
     Dates: start: 200906
  3. SILDENAFIL [Concomitant]
  4. DIGOXIN [Concomitant]
  5. CARDIZEM [Concomitant]
  6. MICRO-K [Concomitant]
  7. PREDNISONE [Concomitant]

REACTIONS (4)
  - Renal failure acute [Recovering/Resolving]
  - Hyperkalaemia [Recovering/Resolving]
  - Atrial fibrillation [Unknown]
  - Gallbladder disorder [Unknown]
